FAERS Safety Report 10044804 (Version 4)
Quarter: 2015Q2

REPORT INFORMATION
  Report Type: Spontaneous
  Country: US (occurrence: US)
  Receive Date: 20140328
  Receipt Date: 20150526
  Transmission Date: 20150821
  Serious: Yes (Other)
  Sender: FDA-Public Use
  Company Number: US-JNJFOC-20140315989

PATIENT

DRUGS (1)
  1. ITRACONAZOLE. [Suspect]
     Active Substance: ITRACONAZOLE
     Indication: BASAL CELL CARCINOMA
     Route: 048

REACTIONS (3)
  - Cardiac failure congestive [Unknown]
  - Product use issue [Unknown]
  - Therapeutic response unexpected [Unknown]
